FAERS Safety Report 19614142 (Version 3)
Quarter: 2021Q3

REPORT INFORMATION
  Report Type: Spontaneous
  Country: ZA (occurrence: ZA)
  Receive Date: 20210727
  Receipt Date: 20210913
  Transmission Date: 20211014
  Serious: Yes (Other)
  Sender: FDA-Public Use
  Company Number: ZA-TEVA-2021-ZA-1936774

PATIENT
  Age: 57 Year
  Sex: Female
  Weight: 39 kg

DRUGS (6)
  1. ZOSTEOPOR [Concomitant]
  2. PHENERGAN [Concomitant]
     Active Substance: PROMETHAZINE HYDROCHLORIDE
     Indication: ANTIALLERGIC THERAPY
     Route: 042
     Dates: start: 20210408, end: 20210527
  3. FILGRASTIM 30MIU [Concomitant]
  4. PCH PACLITAXEL 100 MG [Suspect]
     Active Substance: PACLITAXEL
     Indication: BREAST CANCER METASTATIC
     Dosage: C1?C7
     Route: 042
     Dates: start: 20210408, end: 20210527
  5. GRANTRYL 3MG IV [Concomitant]
     Indication: PROPHYLAXIS OF NAUSEA AND VOMITING
     Route: 042
  6. DEXONA 4MG IV [Concomitant]
     Route: 042

REACTIONS (11)
  - Balance disorder [Not Recovered/Not Resolved]
  - Taste disorder [Not Recovered/Not Resolved]
  - Back pain [Not Recovered/Not Resolved]
  - Nausea [Not Recovered/Not Resolved]
  - Erythema [Not Recovered/Not Resolved]
  - Fatigue [Not Recovered/Not Resolved]
  - Alopecia [Not Recovered/Not Resolved]
  - Skin exfoliation [Not Recovered/Not Resolved]
  - Oral pain [Not Recovered/Not Resolved]
  - Weight increased [Not Recovered/Not Resolved]
  - Decreased appetite [Not Recovered/Not Resolved]

NARRATIVE: CASE EVENT DATE: 202105
